FAERS Safety Report 6698580-9 (Version None)
Quarter: 2010Q2

REPORT INFORMATION
  Report Type: 
  Country: None (occurrence: None)
  Receive Date: 20100427
  Receipt Date: 20100416
  Transmission Date: 20101027
  Serious: Yes (Other)
  Sender: FDA-Public Use
  Company Number: US-JNJFOC-20100405599

PATIENT
  Age: 22 Year
  Sex: Female
  Weight: 45.36 kg

DRUGS (4)
  1. EXTRA STRENGTH TYLENOL [Suspect]
     Route: 048
  2. EXTRA STRENGTH TYLENOL [Suspect]
     Indication: BACK PAIN
     Dosage: 1000 MG, 3 TIMES DAILY, ^TOOK FOR ABOUT 2 WEEKS IN LATE JAN OR EARLY FEB 2010^
     Route: 048
  3. TYLENOL ALLERGY MULTI-SYMPTOM COOL BURST [Suspect]
     Indication: HEADACHE
     Route: 048
  4. ADVIL [Concomitant]

REACTIONS (5)
  - ARTHRALGIA [None]
  - DRUG TOXICITY [None]
  - JOINT SWELLING [None]
  - MYALGIA [None]
  - VERTIGO [None]
